FAERS Safety Report 16534272 (Version 1)
Quarter: 2019Q3

REPORT INFORMATION
  Report Type: Spontaneous
  Country: US (occurrence: US)
  Receive Date: 20190704
  Receipt Date: 20190704
  Transmission Date: 20191004
  Serious: Yes (Other)
  Sender: FDA-Public Use
  Company Number: None

PATIENT
  Age: 79 Year
  Sex: Male

DRUGS (1)
  1. TAMSULOSIN CAPSULES [Suspect]
     Active Substance: TAMSULOSIN
     Route: 048
     Dates: start: 20190612, end: 20190621

REACTIONS (3)
  - Benign prostatic hyperplasia [None]
  - Product substitution issue [None]
  - Condition aggravated [None]
